FAERS Safety Report 7186271 (Version 2)
Quarter: 2013Q4

REPORT INFORMATION
  Report Type: Spontaneous
  Country: US (occurrence: None)
  Receive Date: 20091109
  Receipt Date: 20131105
  Transmission Date: 20140711
  Serious: Yes (Hospitalization, Other)
  Sender: FDA-Public Use
  Company Number: AUR-APL-2009-01053

PATIENT
  Age: 51 Year
  Sex: Female

DRUGS (3)
  1. METOPROLOL TARTRATE [Suspect]
     Indication: PRODUCT USED FOR UNKNOWN INDICATION
  2. VENLAFAXINE [Suspect]
     Indication: PRODUCT USED FOR UNKNOWN INDICATION
  3. TYLENOL [Suspect]
     Indication: PRODUCT USED FOR UNKNOWN INDICATION

REACTIONS (14)
  - Unresponsive to stimuli [None]
  - Hypotension [None]
  - Tachycardia [None]
  - Metabolic acidosis [None]
  - Respiratory acidosis [None]
  - Blood alcohol increased [None]
  - White blood cell count increased [None]
  - Acute myocardial infarction [None]
  - Drug level increased [None]
  - Overdose [None]
  - Acute myocardial infarction [None]
  - Overdose [None]
  - Toxicity to various agents [None]
  - Myocardial ischaemia [None]
